FAERS Safety Report 24538578 (Version 3)
Quarter: 2024Q4

REPORT INFORMATION
  Report Type: Report from Study
  Country: BR (occurrence: BR)
  Receive Date: 20241023
  Receipt Date: 20241106
  Transmission Date: 20250115
  Serious: Yes (Other)
  Sender: JOHNSON AND JOHNSON
  Company Number: BR-JNJFOC-20241046326

PATIENT
  Age: 14 Year
  Sex: Female
  Weight: 45 kg

DRUGS (4)
  1. INFLIXIMAB [Suspect]
     Active Substance: INFLIXIMAB
     Indication: Crohn^s disease
     Dosage: LAST DRUG APPLICATION: 09-OCT-2024 2ND DOSE FOR 2 WEEKS
     Route: 041
     Dates: start: 20240923
  2. INFLIXIMAB [Suspect]
     Active Substance: INFLIXIMAB
     Indication: Cystitis
  3. CARBAMAZEPINE [Concomitant]
     Active Substance: CARBAMAZEPINE
     Indication: Epilepsy
  4. AZATHIOPRINE [Concomitant]
     Active Substance: AZATHIOPRINE
     Indication: Epilepsy

REACTIONS (3)
  - Bladder stenosis [Not Recovered/Not Resolved]
  - Fistula [Not Recovered/Not Resolved]
  - Inappropriate schedule of product administration [Unknown]

NARRATIVE: CASE EVENT DATE: 20241009
